FAERS Safety Report 18926012 (Version 1)
Quarter: 2021Q1

REPORT INFORMATION
  Report Type: Report from Study
  Country: CN (occurrence: CN)
  Receive Date: 20210222
  Receipt Date: 20210222
  Transmission Date: 20210420
  Serious: Yes (Other)
  Sender: FDA-Public Use
  Company Number: CN-SUN PHARMACEUTICAL INDUSTRIES LTD-2021R1-282105

PATIENT
  Age: 42 Year
  Sex: Female

DRUGS (3)
  1. THALIDOMIDE [Concomitant]
     Active Substance: THALIDOMIDE
     Indication: PARANEOPLASTIC PEMPHIGUS
     Dosage: 50 MILLIGRAM, DAILY
     Route: 048
  2. PREDNISONE. [Suspect]
     Active Substance: PREDNISONE
     Indication: PARANEOPLASTIC PEMPHIGUS
     Dosage: UNK 0.2?1MG/KG/D
     Route: 048
  3. IMMUNOGLOBULIN [Concomitant]
     Indication: PARANEOPLASTIC PEMPHIGUS
     Dosage: UNK
     Route: 042

REACTIONS (3)
  - Stomatitis [Unknown]
  - Respiratory disorder [Unknown]
  - Therapy partial responder [Unknown]
